FAERS Safety Report 4922212-0 (Version None)
Quarter: 2006Q1

REPORT INFORMATION
  Report Type: 
  Country: None (occurrence: None)
  Receive Date: 20060224
  Receipt Date: 20050509
  Transmission Date: 20060701
  Serious: Yes (Hospitalization, Disabling)
  Sender: FDA-Public Use
  Company Number: US-MERCK-0505USA01049

PATIENT
  Age: 56 Year
  Sex: Female

DRUGS (4)
  1. VIOXX [Suspect]
     Indication: ARTHRITIS
     Route: 048
  2. SYNTHROID [Concomitant]
     Route: 048
  3. CARBATROL [Concomitant]
     Route: 048
  4. PREDNISONE [Concomitant]
     Route: 065

REACTIONS (14)
  - ANAEMIA [None]
  - BRONCHITIS [None]
  - CEREBRAL INFARCTION [None]
  - DEEP VEIN THROMBOSIS [None]
  - DEPRESSION [None]
  - HYPOCALCAEMIA [None]
  - INTERVERTEBRAL DISC DEGENERATION [None]
  - JOINT SPRAIN [None]
  - LUMBAR SPINAL STENOSIS [None]
  - NEUROPATHY PERIPHERAL [None]
  - PULMONARY EMBOLISM [None]
  - SPINAL OSTEOARTHRITIS [None]
  - UPPER RESPIRATORY TRACT INFECTION [None]
  - URINARY TRACT INFECTION [None]
